FAERS Safety Report 7687233-6 (Version None)
Quarter: 2011Q3

REPORT INFORMATION
  Report Type: 
  Country: None (occurrence: None)
  Receive Date: 20110816
  Receipt Date: 20110803
  Transmission Date: 20111222
  Serious: Yes (Other)
  Sender: FDA-Public Use
  Company Number: US-MYLANLABS-2011S1016083

PATIENT
  Age: 43 Year
  Sex: Male

DRUGS (7)
  1. ROCURONIUM BROMIDE [Concomitant]
     Indication: ENDOTRACHEAL INTUBATION
     Route: 065
  2. SEVOFLURANE [Concomitant]
     Indication: MAINTENANCE OF ANAESTHESIA
     Dosage: {0.5 MINIMUM ALVEOLAR CONCENTRATION
     Route: 065
  3. PROPOFOL [Suspect]
     Indication: MAINTENANCE OF ANAESTHESIA
     Dosage: 50-75 MICROG/KG/MIN
  4. REMIFENTANIL [Suspect]
     Indication: MAINTENANCE OF ANAESTHESIA
     Dosage: 0.1-0.2 MICROG/KG/MIN
  5. FENTANYL [Concomitant]
     Indication: INDUCTION OF ANAESTHESIA
     Route: 065
  6. PROPOFOL [Concomitant]
     Indication: INDUCTION OF ANAESTHESIA
     Route: 065
  7. LACTATED RINGER'S [Concomitant]

REACTIONS (2)
  - EXTRAVASATION [None]
  - COMPARTMENT SYNDROME [None]
